FAERS Safety Report 5932051-X (Version None)
Quarter: 2008Q4

REPORT INFORMATION
  Report Type: 
  Country: None (occurrence: None)
  Receive Date: 20081027
  Receipt Date: 20081016
  Transmission Date: 20090506
  Serious: Yes (Other)
  Sender: FDA-Public Use
  Company Number: US-PFIZER INC-2008088773

PATIENT
  Sex: Male
  Weight: 63 kg

DRUGS (2)
  1. CHANTIX [Suspect]
     Indication: SMOKING CESSATION THERAPY
     Route: 048
     Dates: start: 20081001
  2. LEXAPRO [Concomitant]
     Indication: OBSESSIVE-COMPULSIVE DISORDER

REACTIONS (7)
  - ABNORMAL DREAMS [None]
  - ANGER [None]
  - CONSTIPATION [None]
  - HEADACHE [None]
  - MUSCLE SPASMS [None]
  - SLEEP DISORDER [None]
  - THINKING ABNORMAL [None]
